FAERS Safety Report 23363126 (Version 2)
Quarter: 2024Q1

REPORT INFORMATION
  Report Type: Spontaneous
  Country: CN (occurrence: CN)
  Receive Date: 20240103
  Receipt Date: 20240109
  Transmission Date: 20240410
  Serious: Yes (Hospitalization)
  Sender: FDA-Public Use
  Company Number: CN-ELI_LILLY_AND_COMPANY-CN202312015995

PATIENT
  Sex: Female
  Weight: 77.5 kg

DRUGS (4)
  1. TRULICITY [Suspect]
     Active Substance: DULAGLUTIDE
     Indication: Type 2 diabetes mellitus
     Dosage: 1.5 MG, WEEKLY (1/W)
     Route: 058
     Dates: start: 202102
  2. TRULICITY [Suspect]
     Active Substance: DULAGLUTIDE
     Dosage: 1.5 MG, WEEKLY (1/W)
     Route: 058
     Dates: start: 20231228
  3. COVID-19 VACCINE NOS [Suspect]
     Active Substance: COVID-19 VACCINE NOS
     Indication: Product used for unknown indication
     Dosage: UNK UNK, UNKNOWN
     Route: 065
     Dates: start: 202109
  4. GLUCOBAY [Concomitant]
     Active Substance: ACARBOSE
     Indication: Product used for unknown indication

REACTIONS (22)
  - Muscular weakness [Recovered/Resolved]
  - Fall [Recovered/Resolved]
  - Weight increased [Unknown]
  - Ligament sprain [Unknown]
  - Insomnia [Unknown]
  - Pain in extremity [Unknown]
  - Pain [Unknown]
  - Inflammation [Unknown]
  - Hypertension [Unknown]
  - Cardiac disorder [Unknown]
  - Pneumonitis [Unknown]
  - Menopausal symptoms [Unknown]
  - Herpes virus infection [Unknown]
  - COVID-19 [Unknown]
  - Hypoaesthesia [Unknown]
  - Blood glucose increased [Unknown]
  - Memory impairment [Not Recovered/Not Resolved]
  - Irritability [Unknown]
  - Depression [Unknown]
  - Diarrhoea [Unknown]
  - Heart rate increased [Unknown]
  - Product dose omission issue [Unknown]

NARRATIVE: CASE EVENT DATE: 20220201
